FAERS Safety Report 18604644 (Version 1)
Quarter: 2020Q4

REPORT INFORMATION
  Report Type: Report from Study
  Country: US (occurrence: US)
  Receive Date: 20201211
  Receipt Date: 20201211
  Transmission Date: 20210114
  Serious: Yes (Other)
  Sender: FDA-Public Use
  Company Number: US-ASTRAZENECA-2020SF56868

PATIENT
  Sex: Female

DRUGS (3)
  1. LYNPARZA [Suspect]
     Active Substance: OLAPARIB
     Indication: METASTASES TO LYMPH NODES
     Route: 048
     Dates: start: 20201102, end: 20201202
  2. LYNPARZA [Suspect]
     Active Substance: OLAPARIB
     Indication: METASTASES TO OVARY
     Route: 048
     Dates: start: 20201102, end: 20201202
  3. LYNPARZA [Suspect]
     Active Substance: OLAPARIB
     Indication: OVARIAN CANCER
     Route: 048
     Dates: start: 20201102, end: 20201202

REACTIONS (7)
  - Hypersensitivity [Unknown]
  - Blood pressure decreased [Unknown]
  - Abdominal distension [Unknown]
  - Abdominal pain [Unknown]
  - Drug ineffective [Unknown]
  - Pruritus [Unknown]
  - Disease progression [Unknown]
